FAERS Safety Report 7493510-4 (Version None)
Quarter: 2011Q2

REPORT INFORMATION
  Report Type: 
  Country: None (occurrence: None)
  Receive Date: 20110520
  Receipt Date: 20110506
  Transmission Date: 20111010
  Serious: Yes (Death)
  Sender: FDA-Public Use
  Company Number: GB-MYLANLABS-2011S1009601

PATIENT
  Age: 55 Year
  Sex: Male

DRUGS (10)
  1. DOXORUBICIN HCL [Suspect]
     Indication: BURKITT'S LYMPHOMA
     Route: 065
  2. IFOSFAMIDE [Suspect]
     Indication: BURKITT'S LYMPHOMA
     Route: 065
  3. EMTRICITABINE [Concomitant]
     Indication: HIV INFECTION
     Route: 065
  4. EFAVIRENZ [Concomitant]
     Indication: HIV INFECTION
     Route: 065
  5. CYCLOPHOSPHAMIDE [Suspect]
     Indication: BURKITT'S LYMPHOMA
     Route: 065
  6. VINCRISTINE [Suspect]
     Indication: BURKITT'S LYMPHOMA
     Route: 065
  7. METHOTREXATE [Suspect]
     Indication: BURKITT'S LYMPHOMA
     Route: 065
  8. ETOPOSIDE [Suspect]
     Indication: BURKITT'S LYMPHOMA
     Route: 065
  9. CYTARABINE [Suspect]
     Indication: BURKITT'S LYMPHOMA
     Route: 065
  10. TENOFOVIR DISOPROXIL FUMARATE [Concomitant]
     Indication: HIV INFECTION
     Route: 065

REACTIONS (1)
  - TOXICITY TO VARIOUS AGENTS [None]
